FAERS Safety Report 21039207 (Version 1)
Quarter: 2022Q3

REPORT INFORMATION
  Report Type: Report from Study
  Country: DE (occurrence: DE)
  Receive Date: 20220704
  Receipt Date: 20220704
  Transmission Date: 20221027
  Serious: Yes (Other)
  Sender: FDA-Public Use
  Company Number: DE-TAKEDA-2020TUS047600

PATIENT
  Age: 61 Year
  Sex: Female
  Weight: 68 kg

DRUGS (4)
  1. HUMAN IMMUNOGLOBULIN G [Suspect]
     Active Substance: HUMAN IMMUNOGLOBULIN G
     Indication: Immunodeficiency
     Dosage: 8 GRAM, Q2WEEKS
     Route: 058
     Dates: start: 20180502
  2. HUMAN IMMUNOGLOBULIN G [Suspect]
     Active Substance: HUMAN IMMUNOGLOBULIN G
     Indication: Primary immunodeficiency syndrome
     Dosage: 8 GRAM, 1/WEEK
     Route: 058
     Dates: start: 20180502
  3. HUMAN IMMUNOGLOBULIN G [Suspect]
     Active Substance: HUMAN IMMUNOGLOBULIN G
     Dosage: 8 GRAM, 1/WEEK
     Route: 058
     Dates: start: 20201023
  4. Salofalk [Concomitant]
     Route: 048

REACTIONS (4)
  - Diverticulitis [Not Recovered/Not Resolved]
  - Headache [Recovering/Resolving]
  - Hypertension [Not Recovered/Not Resolved]
  - Inflammation [Recovering/Resolving]
